FAERS Safety Report 15773259 (Version 1)
Quarter: 2018Q4

REPORT INFORMATION
  Report Type: Other
  Country: US (occurrence: US)
  Receive Date: 20181228
  Receipt Date: 20181228
  Transmission Date: 20190205
  Serious: Yes (Death, Hospitalization)
  Sender: FDA-Public Use
  Company Number: US-VERASTEM-2018-00087

PATIENT

DRUGS (1)
  1. COPIKTRA [Suspect]
     Active Substance: DUVELISIB
     Indication: MARGINAL ZONE LYMPHOMA
     Dosage: 25 MG, BID
     Route: 048
     Dates: start: 20181201

REACTIONS (5)
  - Product dose omission [Unknown]
  - Dysphagia [Not Recovered/Not Resolved]
  - Product use in unapproved indication [Not Recovered/Not Resolved]
  - Dyspnoea [Not Recovered/Not Resolved]
  - Small cell lung cancer [Fatal]

NARRATIVE: CASE EVENT DATE: 201812
